FAERS Safety Report 5366152-4 (Version None)
Quarter: 2007Q2

REPORT INFORMATION
  Report Type: 
  Country: None (occurrence: None)
  Receive Date: 20070611
  Receipt Date: 20060710
  Transmission Date: 20071010
  Serious: Yes (Other)
  Sender: FDA-Public Use
  Company Number: USA-2006-0026654

PATIENT
  Sex: Female

DRUGS (1)
  1. OXYCONTIN [Suspect]
     Indication: DRUG ABUSER

REACTIONS (16)
  - BOWEL SOUNDS ABNORMAL [None]
  - COLD SWEAT [None]
  - DIARRHOEA [None]
  - DRUG ABUSER [None]
  - DRUG DEPENDENCE [None]
  - DYSPNOEA [None]
  - EUPHORIC MOOD [None]
  - FALL [None]
  - HEAD INJURY [None]
  - MUSCLE SPASMS [None]
  - MYALGIA [None]
  - NAUSEA [None]
  - RETCHING [None]
  - SLEEP ATTACKS [None]
  - THERMAL BURN [None]
  - VOMITING [None]
